FAERS Safety Report 4766563-1 (Version None)
Quarter: 2005Q3

REPORT INFORMATION
  Report Type: 
  Country: None (occurrence: None)
  Receive Date: 20050908
  Receipt Date: 20050826
  Transmission Date: 20060218
  Serious: Yes (Death)
  Sender: FDA-Public Use
  Company Number: 217251

PATIENT
  Age: 59 Year
  Sex: Male

DRUGS (4)
  1. RITUXAN [Suspect]
     Indication: B-CELL LYMPHOMA
     Dosage: 3 DOSES
     Dates: start: 20050524
  2. IFOSFAMIDE [Suspect]
     Indication: B-CELL LYMPHOMA
     Dosage: 3 DOSES
     Dates: start: 20050524
  3. CARBOPLATIN [Suspect]
     Indication: B-CELL LYMPHOMA
     Dosage: 3 DOSES
     Dates: start: 20050524
  4. ETOPOSIDE (TOPOSIDE) [Suspect]
     Indication: B-CELL LYMPHOMA
     Dosage: 3 DOSES
     Dates: start: 20050524

REACTIONS (2)
  - BRONCHOPNEUMONIA [None]
  - NEUTROPENIA [None]
